FAERS Safety Report 16950975 (Version 1)
Quarter: 2019Q4

REPORT INFORMATION
  Report Type: Spontaneous
  Country: CN (occurrence: CN)
  Receive Date: 20191023
  Receipt Date: 20191023
  Transmission Date: 20200122
  Serious: Yes (Other)
  Sender: FDA-Public Use
  Company Number: CN-PFIZER INC-2019452372

PATIENT
  Age: 80 Year
  Sex: Female
  Weight: 40 kg

DRUGS (2)
  1. LIPITOR [Suspect]
     Active Substance: ATORVASTATIN CALCIUM
     Indication: CEREBRAL INFARCTION
     Dosage: 40 MG, 1X/DAY
     Route: 048
     Dates: start: 20190913, end: 20190923
  2. EN BI PU [Concomitant]
     Active Substance: DIBUTYL PHTHALATE
     Indication: COLLATERAL CIRCULATION
     Dosage: 0.2 G, 3X/DAY (TID)
     Route: 048
     Dates: start: 20190918, end: 20190930

REACTIONS (2)
  - Acute generalised exanthematous pustulosis [Recovering/Resolving]
  - Dermatitis allergic [Recovering/Resolving]

NARRATIVE: CASE EVENT DATE: 20190920
